FAERS Safety Report 17124052 (Version 1)
Quarter: 2019Q4

REPORT INFORMATION
  Report Type: Spontaneous
  Country: US (occurrence: US)
  Receive Date: 20191206
  Receipt Date: 20191206
  Transmission Date: 20200122
  Serious: No
  Sender: FDA-Public Use
  Company Number: US-ROCHE-2384925

PATIENT
  Age: 39 Year
  Sex: Male

DRUGS (1)
  1. OCREVUS [Suspect]
     Active Substance: OCRELIZUMAB
     Indication: MULTIPLE SCLEROSIS
     Dosage: FIRST HALF DOSE
     Route: 042
     Dates: start: 20190521

REACTIONS (5)
  - Palpitations [Unknown]
  - Nasopharyngitis [Unknown]
  - Heart rate increased [Unknown]
  - Flushing [Unknown]
  - Cold sweat [Unknown]

NARRATIVE: CASE EVENT DATE: 20190521
